FAERS Safety Report 6169620-0 (Version None)
Quarter: 2009Q2

REPORT INFORMATION
  Report Type: 
  Country: None (occurrence: None)
  Receive Date: 20090424
  Receipt Date: 20090202
  Transmission Date: 20091009
  Serious: No
  Sender: FDA-Public Use
  Company Number: ALL1-2009-00255

PATIENT
  Age: 33 Year
  Sex: Male
  Weight: 77.1 kg

DRUGS (5)
  1. VYVANSE [Suspect]
     Indication: ATTENTION DEFICIT/HYPERACTIVITY DISORDER
     Dosage: 50 MG, 1X/DAY, QD, ORAL, 60 MG, 1X/DAY, QD, ORAL
     Route: 048
     Dates: start: 20081001, end: 20081201
  2. VYVANSE [Suspect]
     Indication: ATTENTION DEFICIT/HYPERACTIVITY DISORDER
     Dosage: 50 MG, 1X/DAY, QD, ORAL, 60 MG, 1X/DAY, QD, ORAL
     Route: 048
     Dates: start: 20081201
  3. CLARITIN (GLICLAZIDE) [Concomitant]
  4. ANTIOXIDANT (ASCORBIC ACID, RETINOL, SELENIUM, TOCOPHERYL ACETATE) [Concomitant]
  5. MULTIVITAMIN [Concomitant]

REACTIONS (3)
  - ANXIETY [None]
  - HIGH DENSITY LIPOPROTEIN DECREASED [None]
  - IRRITABILITY [None]
